FAERS Safety Report 6308689-7 (Version None)
Quarter: 2009Q3

REPORT INFORMATION
  Report Type: 
  Country: None (occurrence: None)
  Receive Date: 20090811
  Receipt Date: 20090601
  Transmission Date: 20100115
  Serious: No
  Sender: FDA-Public Use
  Company Number: 1000006562

PATIENT
  Sex: Female

DRUGS (4)
  1. SAVELLA [Suspect]
     Dosage: ORAL
     Route: 048
     Dates: start: 20090101, end: 20090101
  2. LYRICA [Concomitant]
  3. COREG [Concomitant]
  4. MULTIPLE MEDICATIONS (NOS) [Concomitant]

REACTIONS (1)
  - DIZZINESS [None]
